FAERS Safety Report 21127298 (Version 1)
Quarter: 2022Q3

REPORT INFORMATION
  Report Type: Spontaneous
  Country: US (occurrence: US)
  Receive Date: 20220725
  Receipt Date: 20220725
  Transmission Date: 20221027
  Serious: No
  Sender: FDA-Public Use
  Company Number: US-ABBVIE-21K-163-4081953-00

PATIENT
  Sex: Female

DRUGS (2)
  1. LEVOTHYROXINE [Suspect]
     Active Substance: LEVOTHYROXINE
     Indication: Hypothyroidism
     Route: 048
  2. SYNTHROID [Suspect]
     Active Substance: LEVOTHYROXINE SODIUM
     Indication: Hypothyroidism
     Route: 048

REACTIONS (14)
  - Dysphonia [Not Recovered/Not Resolved]
  - Muscle atrophy [Unknown]
  - Dizziness [Unknown]
  - Inflammation [Unknown]
  - Nail ridging [Unknown]
  - Onycholysis [Unknown]
  - Heart rate decreased [Unknown]
  - Frustration tolerance decreased [Unknown]
  - Pain [Unknown]
  - Dysphagia [Unknown]
  - Headache [Unknown]
  - Arthralgia [Unknown]
  - Anxiety [Unknown]
  - Insomnia [Unknown]
